FAERS Safety Report 24717384 (Version 1)
Quarter: 2024Q4

REPORT INFORMATION
  Report Type: Spontaneous
  Country: US (occurrence: None)
  Receive Date: 20241209
  Receipt Date: 20241209
  Transmission Date: 20250115
  Serious: Yes (Hospitalization, Other)
  Sender: Public
  Company Number: None

PATIENT
  Age: 70 Year
  Sex: 0
  Weight: 95 kg

DRUGS (1)
  1. ROMIDEPSIN [Suspect]
     Active Substance: ROMIDEPSIN
     Indication: T-cell lymphoma
     Dates: start: 20241205

REACTIONS (4)
  - Erythema [None]
  - Blister [None]
  - Burns second degree [None]
  - Pain [None]

NARRATIVE: CASE EVENT DATE: 20241205
